FAERS Safety Report 5910567-X (Version None)
Quarter: 2008Q4

REPORT INFORMATION
  Report Type: 
  Country: None (occurrence: None)
  Receive Date: 20081007
  Receipt Date: 20080324
  Transmission Date: 20090506
  Serious: No
  Sender: FDA-Public Use
  Company Number: US-ASTRAZENECA-2008UW05848

PATIENT
  Age: 62 Year
  Sex: Female
  Weight: 48.5 kg

DRUGS (2)
  1. ARIMIDEX [Suspect]
     Route: 048
     Dates: start: 20070501
  2. VITAMIN TAB [Concomitant]

REACTIONS (3)
  - ANGIOEDEMA [None]
  - ARTHRALGIA [None]
  - MEDIAL TIBIAL STRESS SYNDROME [None]
